FAERS Safety Report 5827265-3 (Version None)
Quarter: 2008Q3

REPORT INFORMATION
  Report Type: 
  Country: None (occurrence: None)
  Receive Date: 20080725
  Receipt Date: 20080718
  Transmission Date: 20090109
  Serious: Yes (Life-Threatening, Hospitalization)
  Sender: FDA-Public Use
  Company Number: 2007JP002227

PATIENT
  Age: 18 Year
  Sex: Female
  Weight: 50 kg

DRUGS (26)
  1. TACROLIMUS [Suspect]
     Indication: SYSTEMIC LUPUS ERYTHEMATOSUS
     Dosage: 2 MG, UID/QD, ORAL; 1 MG, ORAL; 2 MG, ORAL; 1 MG, ORAL; 2 MG, ORAL
     Route: 048
     Dates: start: 20070411, end: 20070513
  2. TACROLIMUS [Suspect]
     Indication: SYSTEMIC LUPUS ERYTHEMATOSUS
     Dosage: 2 MG, UID/QD, ORAL; 1 MG, ORAL; 2 MG, ORAL; 1 MG, ORAL; 2 MG, ORAL
     Route: 048
     Dates: start: 20070820, end: 20070918
  3. TACROLIMUS [Suspect]
     Indication: SYSTEMIC LUPUS ERYTHEMATOSUS
     Dosage: 2 MG, UID/QD, ORAL; 1 MG, ORAL; 2 MG, ORAL; 1 MG, ORAL; 2 MG, ORAL
     Route: 048
     Dates: start: 20070919, end: 20080203
  4. TACROLIMUS [Suspect]
     Indication: SYSTEMIC LUPUS ERYTHEMATOSUS
     Dosage: 2 MG, UID/QD, ORAL; 1 MG, ORAL; 2 MG, ORAL; 1 MG, ORAL; 2 MG, ORAL
     Route: 048
     Dates: start: 20080325, end: 20080501
  5. TACROLIMUS [Suspect]
     Indication: SYSTEMIC LUPUS ERYTHEMATOSUS
     Dosage: 2 MG, UID/QD, ORAL; 1 MG, ORAL; 2 MG, ORAL; 1 MG, ORAL; 2 MG, ORAL
     Route: 048
     Dates: start: 20080502
  6. PREDNISOLONE [Suspect]
     Indication: LUPUS NEPHRITIS
     Dosage: 11.25 MG, BID, ORAL; 20 MG, ORAL; 17.5 MG, ORAL; 15 MG, ORAL; 12.5 MG, ORAL; 10 MG, ORAL
     Route: 048
     Dates: start: 20020901, end: 20070610
  7. PREDNISOLONE [Suspect]
     Indication: LUPUS NEPHRITIS
     Dosage: 11.25 MG, BID, ORAL; 20 MG, ORAL; 17.5 MG, ORAL; 15 MG, ORAL; 12.5 MG, ORAL; 10 MG, ORAL
     Route: 048
     Dates: start: 20070611, end: 20070624
  8. PREDNISOLONE [Suspect]
     Indication: LUPUS NEPHRITIS
     Dosage: 11.25 MG, BID, ORAL; 20 MG, ORAL; 17.5 MG, ORAL; 15 MG, ORAL; 12.5 MG, ORAL; 10 MG, ORAL
     Route: 048
     Dates: start: 20070625, end: 20070708
  9. PREDNISOLONE [Suspect]
     Indication: LUPUS NEPHRITIS
     Dosage: 11.25 MG, BID, ORAL; 20 MG, ORAL; 17.5 MG, ORAL; 15 MG, ORAL; 12.5 MG, ORAL; 10 MG, ORAL
     Route: 048
     Dates: start: 20070709, end: 20070819
  10. PREDNISOLONE [Suspect]
     Indication: LUPUS NEPHRITIS
     Dosage: 11.25 MG, BID, ORAL; 20 MG, ORAL; 17.5 MG, ORAL; 15 MG, ORAL; 12.5 MG, ORAL; 10 MG, ORAL
     Route: 048
     Dates: start: 20070820, end: 20070918
  11. PREDNISOLONE [Suspect]
     Indication: LUPUS NEPHRITIS
     Dosage: 11.25 MG, BID, ORAL; 20 MG, ORAL; 17.5 MG, ORAL; 15 MG, ORAL; 12.5 MG, ORAL; 10 MG, ORAL
     Route: 048
     Dates: start: 20070919, end: 20080203
  12. WARFARIN SODIUM [Suspect]
     Indication: SYSTEMIC LUPUS ERYTHEMATOSUS
     Dosage: 1 MG, UID/QD, ORAL; 1 MG, ORAL
     Route: 048
     Dates: end: 20080204
  13. WARFARIN SODIUM [Suspect]
     Indication: SYSTEMIC LUPUS ERYTHEMATOSUS
     Dosage: 1 MG, UID/QD, ORAL; 1 MG, ORAL
     Route: 048
     Dates: start: 20080212
  14. AMLODIN (AMLODIPINE BESIALTE) ORODISPERSIBLE CR TABLET [Concomitant]
  15. LUPRAC (TORASEMIDE) TABLET [Concomitant]
  16. ONEALFA (ALFACALCIDOL) TABLET [Concomitant]
  17. FERROMIA (FERROUS CITRATE) TABLET [Concomitant]
  18. BEZATOL (BEZAFIBRATE) TABLET [Concomitant]
  19. PARIET (RABEPRAZOLE SODIUM) TABLET [Concomitant]
  20. PERSANTIN (DIPYRIDAMOLE) TABLET [Concomitant]
  21. ISCOTIN (ISONIAZID) TABLET [Concomitant]
  22. PYDOXAL TABLET [Concomitant]
  23. DOXAZOSIN MESYLATE [Concomitant]
  24. GASTER D ORODISPERSIBLE CR TABLET [Concomitant]
  25. ACINON (NIZATIDINE) PER ORAL NOS [Concomitant]
  26. PREDNISOLONE [Concomitant]

REACTIONS (4)
  - BACK PAIN [None]
  - DIARRHOEA [None]
  - LOWER GASTROINTESTINAL HAEMORRHAGE [None]
  - VARICELLA [None]
